FAERS Safety Report 16198699 (Version 1)
Quarter: 2019Q2

REPORT INFORMATION
  Report Type: Spontaneous
  Country: FR (occurrence: FR)
  Receive Date: 20190415
  Receipt Date: 20190415
  Transmission Date: 20190711
  Serious: Yes (Disabling)
  Sender: FDA-Public Use
  Company Number: FR-PFIZER INC-2019152231

PATIENT
  Age: 90 Year
  Sex: Female

DRUGS (7)
  1. LIPANTHYL [Concomitant]
     Active Substance: FENOFIBRATE
  2. INNOHEP [Suspect]
     Active Substance: TINZAPARIN SODIUM
     Indication: DEEP VEIN THROMBOSIS
     Dosage: 1 DF, 1X/DAY
     Route: 058
     Dates: start: 20180215, end: 20180216
  3. NITRIDERM [Concomitant]
     Active Substance: NITROGLYCERIN
  4. SERESTA [Concomitant]
     Active Substance: OXAZEPAM
  5. FUROSEMIDE. [Concomitant]
     Active Substance: FUROSEMIDE
  6. SERTRALINE [Suspect]
     Active Substance: SERTRALINE HYDROCHLORIDE
     Indication: DEPRESSION
     Dosage: 1 DF, 1X/DAY
     Route: 048
  7. KARDEGIC [Suspect]
     Active Substance: ASPIRIN DL-LYSINE
     Indication: MYOCARDIAL ISCHAEMIA
     Dosage: 1 DF, 1X/DAY
     Route: 048
     Dates: end: 20180216

REACTIONS (2)
  - Anaemia [Recovered/Resolved]
  - Haematoma [Recovered/Resolved with Sequelae]

NARRATIVE: CASE EVENT DATE: 20180216
